FAERS Safety Report 9357534 (Version 1)
Quarter: 2013Q2

REPORT INFORMATION
  Report Type: Spontaneous
  Country: FR (occurrence: FR)
  Receive Date: 20130620
  Receipt Date: 20130620
  Transmission Date: 20140414
  Serious: Yes (Hospitalization)
  Sender: FDA-Public Use
  Company Number: FR-ASTRAZENECA-2013SE46653

PATIENT
  Age: 31693 Day
  Sex: Female

DRUGS (6)
  1. CRESTOR [Suspect]
     Indication: HYPERCHOLESTEROLAEMIA
     Route: 048
     Dates: start: 20120515, end: 20120625
  2. IXPRIM [Concomitant]
  3. MICARDIS [Concomitant]
  4. KARDEGIC [Concomitant]
     Dates: start: 201205, end: 20120618
  5. KARDEGIC [Concomitant]
  6. PLAVIX [Concomitant]
     Dates: end: 201205

REACTIONS (2)
  - Photosensitivity reaction [Recovered/Resolved]
  - Pyrexia [Unknown]
